FAERS Safety Report 26165243 (Version 1)
Quarter: 2025Q4

REPORT INFORMATION
  Report Type: Spontaneous
  Country: GB (occurrence: GB)
  Receive Date: 20251216
  Receipt Date: 20251216
  Transmission Date: 20260117
  Serious: Yes (Hospitalization, Other)
  Sender: NOVO NORDISK
  Company Number: None

PATIENT
  Age: 21 Year
  Sex: Female
  Weight: 76 kg

DRUGS (1)
  1. WEGOVY [Suspect]
     Active Substance: SEMAGLUTIDE
     Indication: Obesity
     Dosage: 2.4MG
     Dates: start: 20250831

REACTIONS (4)
  - Infectious mononucleosis [Recovered/Resolved]
  - Hepatomegaly [Recovered/Resolved]
  - Lymphadenopathy [Recovered/Resolved]
  - Peritonsillar abscess [Recovered/Resolved]

NARRATIVE: CASE EVENT DATE: 20250919
